FAERS Safety Report 25548382 (Version 1)
Quarter: 2025Q3

REPORT INFORMATION
  Report Type: Spontaneous
  Country: US (occurrence: None)
  Receive Date: 20250711
  Receipt Date: 20250711
  Transmission Date: 20251020
  Serious: Yes (Disabling)
  Sender: FDA-CTU
  Company Number: None

PATIENT
  Age: 27 Year
  Sex: Female
  Weight: 68.85 kg

DRUGS (8)
  1. VALACYCLOVIR [Suspect]
     Active Substance: VALACYCLOVIR HYDROCHLORIDE
     Indication: Herpes simplex
     Dosage: OTHER QUANTITY : 1 TABLET(S);?FREQUENCY : DAILY;?
     Route: 048
     Dates: end: 20250630
  2. LITHIUM [Concomitant]
     Active Substance: LITHIUM
  3. VALACYCLOVIR [Concomitant]
     Active Substance: VALACYCLOVIR HYDROCHLORIDE
  4. Blisove Fe [Concomitant]
  5. ZYRTEC [Concomitant]
     Active Substance: CETIRIZINE HYDROCHLORIDE
  6. IRON [Concomitant]
     Active Substance: IRON
  7. VITAMIN E [Concomitant]
     Active Substance: .ALPHA.-TOCOPHEROL
  8. B12 [Concomitant]

REACTIONS (8)
  - Renal disorder [None]
  - Skin odour abnormal [None]
  - Pruritus [None]
  - Back pain [None]
  - Fatigue [None]
  - Thirst [None]
  - Pollakiuria [None]
  - pH urine increased [None]

NARRATIVE: CASE EVENT DATE: 20250620
